FAERS Safety Report 18109434 (Version 1)
Quarter: 2020Q3

REPORT INFORMATION
  Report Type: Spontaneous
  Country: CN (occurrence: CN)
  Receive Date: 20200804
  Receipt Date: 20200804
  Transmission Date: 20201103
  Serious: Yes (Other)
  Sender: FDA-Public Use
  Company Number: CN-ROCHE-2652181

PATIENT
  Age: 53 Year
  Sex: Female

DRUGS (10)
  1. ZOLEDRONIC ACID [Concomitant]
     Active Substance: ZOLEDRONIC ACID
     Route: 041
     Dates: start: 201809, end: 202004
  2. HERCEPTIN [Suspect]
     Active Substance: TRASTUZUMAB
     Indication: BREAST CANCER
     Route: 065
     Dates: start: 2016, end: 2016
  3. XELODA [Suspect]
     Active Substance: CAPECITABINE
     Indication: BREAST CANCER
     Route: 048
     Dates: start: 20180525, end: 20180707
  4. XELODA [Suspect]
     Active Substance: CAPECITABINE
     Indication: METASTASES TO THORAX
     Route: 048
     Dates: start: 20180901
  5. HERCEPTIN [Suspect]
     Active Substance: TRASTUZUMAB
     Route: 065
     Dates: start: 20180730, end: 20180821
  6. DOCETAXEL. [Concomitant]
     Active Substance: DOCETAXEL
     Dates: start: 20180525, end: 20180707
  7. VINORELBINE [Concomitant]
     Active Substance: VINORELBINE TARTRATE
     Dates: start: 20180730, end: 20180821
  8. HERCEPTIN [Suspect]
     Active Substance: TRASTUZUMAB
     Route: 065
     Dates: start: 20180525, end: 20180707
  9. PYROTINIB [Concomitant]
     Active Substance: PYROTINIB
     Dates: start: 201809, end: 202004
  10. HERCEPTIN [Suspect]
     Active Substance: TRASTUZUMAB
     Indication: METASTASES TO THORAX
     Route: 065
     Dates: start: 201607, end: 201707

REACTIONS (4)
  - Pneumonitis [Unknown]
  - Palmar-plantar erythrodysaesthesia syndrome [Unknown]
  - Sinus rhythm [Unknown]
  - Pericardial effusion [Unknown]
